FAERS Safety Report 9925718 (Version 1)
Quarter: 2014Q1

REPORT INFORMATION
  Report Type: Report from Study
  Country: US (occurrence: US)
  Receive Date: 20140226
  Receipt Date: 20140226
  Transmission Date: 20141002
  Serious: Yes (Hospitalization)
  Sender: FDA-Public Use
  Company Number: US-GLAXOSMITHKLINE-Z0011268A

PATIENT
  Age: 47 Year
  Sex: Female
  Weight: 59.3 kg

DRUGS (5)
  1. DABRAFENIB [Suspect]
     Indication: METASTATIC MALIGNANT MELANOMA
     Dosage: 150MG TWICE PER DAY
     Route: 048
     Dates: start: 20110720
  2. LOVENOX [Concomitant]
     Indication: THROMBOSIS PROPHYLAXIS
     Dosage: 40MG PER DAY
     Route: 058
     Dates: start: 20110814
  3. VANCOMYCIN [Concomitant]
     Indication: SEPSIS
     Route: 065
     Dates: start: 201108, end: 20110816
  4. LEVAQUIN [Concomitant]
     Indication: SEPSIS
     Route: 065
     Dates: start: 201108, end: 20110816
  5. CEFEPIME [Concomitant]
     Indication: SEPSIS
     Route: 065
     Dates: start: 201108, end: 20110816

REACTIONS (6)
  - Influenza like illness [Recovered/Resolved]
  - Pulmonary oedema [Recovered/Resolved]
  - Respiratory distress [Recovered/Resolved]
  - Hypoxia [Recovered/Resolved]
  - Anaemia [Recovered/Resolved]
  - Pleuritic pain [Recovered/Resolved]
